FAERS Safety Report 25314046 (Version 1)
Quarter: 2025Q2

REPORT INFORMATION
  Report Type: Spontaneous
  Country: FR (occurrence: FR)
  Receive Date: 20250514
  Receipt Date: 20250514
  Transmission Date: 20250717
  Serious: Yes (Death)
  Sender: PURDUE
  Company Number: None

PATIENT
  Age: 39 Year
  Sex: Female
  Weight: 56 kg

DRUGS (3)
  1. OXYCODONE HYDROCHLORIDE [Suspect]
     Active Substance: OXYCODONE HYDROCHLORIDE
     Indication: Sickle cell anaemia with crisis
     Route: 048
     Dates: start: 20241223
  2. MORPHINE HYDROCHLORIDE [Suspect]
     Active Substance: MORPHINE HYDROCHLORIDE
     Indication: Sickle cell anaemia with crisis
     Route: 042
     Dates: start: 20241223, end: 20241224
  3. KETOPROFEN [Suspect]
     Active Substance: KETOPROFEN
     Indication: Sickle cell anaemia with crisis
     Route: 051
     Dates: start: 20241223

REACTIONS (1)
  - Death [Fatal]

NARRATIVE: CASE EVENT DATE: 20241225
